FAERS Safety Report 9022594 (Version 1)
Quarter: 2013Q1

REPORT INFORMATION
  Report Type: Spontaneous
  Country: US (occurrence: US)
  Receive Date: 20130118
  Receipt Date: 20130118
  Transmission Date: 20140127
  Serious: No
  Sender: FDA-Public Use
  Company Number: US-GLAXOSMITHKLINE-A0995617A

PATIENT
  Sex: Female

DRUGS (11)
  1. PROMACTA [Suspect]
     Indication: IDIOPATHIC THROMBOCYTOPENIC PURPURA
     Dosage: 25MG PER DAY
     Route: 048
     Dates: start: 20110527
  2. CARAFATE [Suspect]
     Indication: PRODUCT USED FOR UNKNOWN INDICATION
     Route: 065
     Dates: start: 20120825
  3. HYDROCHLOROTHIAZIDE [Concomitant]
  4. AMLODIPINE [Concomitant]
  5. LOSARTAN [Concomitant]
  6. DOCUSATE SODIUM [Concomitant]
  7. ESCITALOPRAM [Concomitant]
  8. OMEPRAZOLE [Concomitant]
  9. VITAMIN D3 [Concomitant]
  10. HYDROCODONE/TYLENOL [Concomitant]
  11. CYCLOBENZAPRINE [Concomitant]

REACTIONS (2)
  - Drug interaction [Unknown]
  - Platelet count decreased [Unknown]
